FAERS Safety Report 13221858 (Version 4)
Quarter: 2017Q2

REPORT INFORMATION
  Report Type: Spontaneous
  Country: US (occurrence: DE)
  Receive Date: 20170211
  Receipt Date: 20170609
  Transmission Date: 20170830
  Serious: Yes (Other)
  Sender: FDA-Public Use
  Company Number: US-SUNOVION-2017SUN000561

PATIENT

DRUGS (4)
  1. ASPIRIN. [Concomitant]
     Active Substance: ASPIRIN
  2. METOPROLOL. [Concomitant]
     Active Substance: METOPROLOL
  3. INDACATEROL AND GLYCOPYRROLATE [Suspect]
     Active Substance: GLYCOPYRROLATE\INDACATEROL MALEATE
     Indication: CHRONIC OBSTRUCTIVE PULMONARY DISEASE
     Dosage: 110/50 UG, 1 DF, QD
     Route: 065
     Dates: start: 201612, end: 201702
  4. BRIMICA [Concomitant]
     Active Substance: ACLIDINIUM BROMIDE\FORMOTEROL FUMARATE
     Dosage: UNK

REACTIONS (9)
  - Myalgia [Recovered/Resolved]
  - Pruritus [Unknown]
  - Glossitis [Recovered/Resolved]
  - Swollen tongue [Unknown]
  - Drug intolerance [Unknown]
  - Diplegia [Recovered/Resolved]
  - Flank pain [Recovered/Resolved]
  - Tongue oedema [Unknown]
  - Tongue disorder [Recovered/Resolved]

NARRATIVE: CASE EVENT DATE: 201612
